FAERS Safety Report 4345895-5 (Version None)
Quarter: 2004Q2

REPORT INFORMATION
  Report Type: 
  Country: None (occurrence: None)
  Receive Date: 20040423
  Receipt Date: 20040423
  Transmission Date: 20050107
  Serious: Yes (Life-Threatening)
  Sender: FDA-Public Use
  Company Number: None

PATIENT
  Age: 52 Year
  Sex: Female
  Weight: 74.3899 kg

DRUGS (1)
  1. WELLBUTRIN SR [Suspect]
     Indication: EX-SMOKER
     Dosage: 1 DAILY ORAL
     Route: 048
     Dates: start: 20040329, end: 20040331

REACTIONS (3)
  - CRYING [None]
  - FEAR [None]
  - SUICIDAL IDEATION [None]
